FAERS Safety Report 17695347 (Version 1)
Quarter: 2020Q2

REPORT INFORMATION
  Report Type: Spontaneous
  Country: IN (occurrence: IN)
  Receive Date: 20200422
  Receipt Date: 20200422
  Transmission Date: 20200714
  Serious: Yes (Other)
  Sender: FDA-Public Use
  Company Number: IN-TITAN PHARMACEUTICALS-2020TAN00010

PATIENT
  Age: 20 Year
  Sex: Male

DRUGS (5)
  1. BUPRENORPHINE. [Suspect]
     Active Substance: BUPRENORPHINE
     Dosage: 4 MG, 1X/DAY
     Route: 065
  2. FLUPRITINE [Concomitant]
     Indication: DRUG WITHDRAWAL SYNDROME
     Dosage: 800 MG, 1X/DAY
     Route: 065
  3. BUPRENORPHINE. [Suspect]
     Active Substance: BUPRENORPHINE
     Indication: DRUG WITHDRAWAL MAINTENANCE THERAPY
     Dosage: 6 MG, 1X/DAY [3 DIVIDED DOSES]
     Route: 065
  4. BUPRENORPHINE. [Suspect]
     Active Substance: BUPRENORPHINE
     Dosage: 3.6 MG 1X/DAY [1.2, 3 DIVIDED DOSES]
     Route: 065
  5. BUPRENORPHINE. [Suspect]
     Active Substance: BUPRENORPHINE
     Dosage: 4 1X/DAY [DIVIDED DOSES NOT REPORTED]
     Route: 065

REACTIONS (1)
  - Hallucination, auditory [Recovered/Resolved]
